FAERS Safety Report 12062798 (Version 1)
Quarter: 2016Q1

REPORT INFORMATION
  Report Type: Spontaneous
  Country: US (occurrence: US)
  Receive Date: 20160210
  Receipt Date: 20160210
  Transmission Date: 20160526
  Serious: No
  Sender: FDA-Public Use
  Company Number: US-ALLERGAN-1415233US

PATIENT
  Sex: Female

DRUGS (1)
  1. BOTOX [Suspect]
     Active Substance: ONABOTULINUMTOXINA
     Indication: MIGRAINE
     Dosage: UNK, SINGLE
     Dates: start: 201406, end: 201406

REACTIONS (4)
  - Dysphagia [Recovered/Resolved]
  - Musculoskeletal stiffness [Recovered/Resolved]
  - Burning sensation [Unknown]
  - Neck pain [Recovered/Resolved]
